FAERS Safety Report 21585042 (Version 2)
Quarter: 2022Q4

REPORT INFORMATION
  Report Type: Report from Study
  Country: IL (occurrence: IL)
  Receive Date: 20221111
  Receipt Date: 20221117
  Transmission Date: 20230112
  Serious: Yes (Death, Hospitalization, Other)
  Sender: FDA-Public Use
  Company Number: IL-ABBVIE-22K-082-4231690-00

PATIENT
  Age: 70 Year
  Sex: Female

DRUGS (5)
  1. VENETOCLAX [Suspect]
     Active Substance: VENETOCLAX
     Indication: Acute myeloid leukaemia
     Dosage: 200 MILLIGRAM, DOSE MODIFICATION DUE TO ADVERSE EVENT
     Route: 048
     Dates: start: 20211224, end: 20220105
  2. VENETOCLAX [Suspect]
     Active Substance: VENETOCLAX
     Indication: Acute myeloid leukaemia
     Dosage: 100 MILLIGRAM, DURATION TEXT: RAMP UP
     Route: 048
     Dates: start: 20211019, end: 20211019
  3. VENETOCLAX [Suspect]
     Active Substance: VENETOCLAX
     Indication: Acute myeloid leukaemia
     Dosage: 200 MILLIGRAM, DURATION TEXT: RAMP UP
     Route: 048
     Dates: start: 20211020, end: 20211020
  4. VENETOCLAX [Suspect]
     Active Substance: VENETOCLAX
     Indication: Acute myeloid leukaemia
     Dosage: 300 MILLIGRAM, DOSE MODIFICATION DUE TO ADVERSE EVENT
     Route: 048
     Dates: start: 20220106, end: 20220204
  5. VENETOCLAX [Suspect]
     Active Substance: VENETOCLAX
     Indication: Acute myeloid leukaemia
     Dosage: 400 MILLIGRAM, DURATION TEXT: INTERRUPTION ADVERSE EVENT
     Route: 048
     Dates: start: 20211021, end: 20211120

REACTIONS (3)
  - Condition aggravated [Fatal]
  - Pyrexia [Recovered/Resolved]
  - Disease progression [Unknown]

NARRATIVE: CASE EVENT DATE: 20211120
